FAERS Safety Report 24630260 (Version 1)
Quarter: 2024Q4

REPORT INFORMATION
  Report Type: Spontaneous
  Country: IR (occurrence: IR)
  Receive Date: 20241118
  Receipt Date: 20241118
  Transmission Date: 20250115
  Serious: Yes (Death, Hospitalization)
  Sender: STRIDES
  Company Number: IR-STRIDES ARCOLAB LIMITED-2024SP014824

PATIENT
  Age: 50 Year
  Sex: Male

DRUGS (19)
  1. DOXYCYCLINE [Suspect]
     Active Substance: DOXYCYCLINE
     Indication: Klebsiella infection
     Dosage: 100 MILLIGRAM, EVERY 12 HRS
     Route: 065
  2. DOXYCYCLINE [Suspect]
     Active Substance: DOXYCYCLINE
     Indication: Liver abscess
  3. MEROPENEM [Suspect]
     Active Substance: MEROPENEM
     Indication: Klebsiella infection
     Dosage: 500 MILLIGRAM, EVERY 12 HRS
     Route: 042
  4. MEROPENEM [Suspect]
     Active Substance: MEROPENEM
     Indication: Liver abscess
  5. COLISTIN [Suspect]
     Active Substance: COLISTIN
     Indication: Klebsiella infection
     Dosage: UNK, EVERY 12 HRS (4.5X106 UNITS)
     Route: 042
  6. COLISTIN [Suspect]
     Active Substance: COLISTIN
     Indication: Liver abscess
  7. COLISTIN [Suspect]
     Active Substance: COLISTIN
     Indication: Escherichia infection
  8. AMIKACIN [Suspect]
     Active Substance: AMIKACIN
     Indication: Klebsiella infection
     Dosage: 500 MILLIGRAM, EVERY 12 HRS
     Route: 042
  9. AMIKACIN [Suspect]
     Active Substance: AMIKACIN
     Indication: Liver abscess
  10. AMIKACIN [Suspect]
     Active Substance: AMIKACIN
     Indication: Escherichia infection
  11. TIGECYCLINE [Suspect]
     Active Substance: TIGECYCLINE
     Indication: Klebsiella infection
     Dosage: 50 MILLIGRAM, EVERY 12 HRS
     Route: 042
  12. TIGECYCLINE [Suspect]
     Active Substance: TIGECYCLINE
     Indication: Liver abscess
  13. LINEZOLID [Suspect]
     Active Substance: LINEZOLID
     Indication: Klebsiella infection
     Dosage: 600 MILLIGRAM, EVERY 12 HRS
     Route: 065
  14. LINEZOLID [Suspect]
     Active Substance: LINEZOLID
     Indication: Liver abscess
  15. IMIPENEM AND CILASTATIN [Concomitant]
     Active Substance: CILASTATIN SODIUM\IMIPENEM
     Indication: Evidence based treatment
     Dosage: 500 MILLIGRAM, EVERY 12 HRS
     Route: 042
     Dates: start: 202112
  16. IMIPENEM [Concomitant]
     Active Substance: IMIPENEM
     Indication: Klebsiella infection
     Dosage: 500 MILLIGRAM, EVERY 12 HRS
     Route: 042
  17. IMIPENEM [Concomitant]
     Active Substance: IMIPENEM
     Indication: Liver abscess
  18. FLUCONAZOLE [Concomitant]
     Active Substance: FLUCONAZOLE
     Indication: Fungal infection
     Dosage: 100 MILLIGRAM, EVERY 12 HRS
     Route: 065
  19. ACYCLOVIR [Concomitant]
     Active Substance: ACYCLOVIR
     Indication: Herpes zoster
     Dosage: UNK
     Route: 065

REACTIONS (2)
  - Drug ineffective [Fatal]
  - Off label use [Unknown]
